FAERS Safety Report 8987952 (Version 1)
Quarter: 2012Q4

REPORT INFORMATION
  Report Type: Report from Study
  Country: FR (occurrence: FR)
  Receive Date: 20121227
  Receipt Date: 20121227
  Transmission Date: 20130627
  Serious: Yes (Hospitalization)
  Sender: FDA-Public Use
  Company Number: FR-ASTELLAS-2012EU011082

PATIENT
  Age: 68 Year
  Sex: Male
  Weight: 62 kg

DRUGS (16)
  1. TACROLIMUS [Suspect]
     Dosage: 6 mg, UID/QD
     Route: 065
     Dates: start: 20100612, end: 20100706
  2. TACROLIMUS [Suspect]
     Dosage: 8 mg, UID/QD
     Route: 065
     Dates: start: 20100707, end: 20100823
  3. MYCOPHENOLATE MOFETIL [Suspect]
     Indication: PROPHYLAXIS AGAINST TRANSPLANT REJECTION
     Dosage: 1 g, UID/QD
     Route: 065
     Dates: start: 20090525
  4. MYCOPHENOLATE MOFETIL [Suspect]
     Dosage: 1000 mg, Unknown/D
     Route: 065
     Dates: start: 20090714
  5. CERTICAN [Suspect]
     Indication: PROPHYLAXIS AGAINST TRANSPLANT REJECTION
     Dosage: 5 mg, Unknown/D
     Route: 065
     Dates: start: 20090821, end: 20090929
  6. CERTICAN [Suspect]
     Dosage: 5 mg, Unknown/D
     Route: 065
     Dates: start: 20090930
  7. ALLOPURINOL [Concomitant]
     Dosage: 300 mg, Unknown/D
     Route: 065
     Dates: start: 20090522
  8. ALLOPURINOL [Concomitant]
     Dosage: 300 mg, Unknown/D
     Route: 065
     Dates: start: 20090527
  9. PREDNISOLIN [Concomitant]
     Dosage: 5 mg, UID/QD
     Route: 065
     Dates: start: 20090528
  10. PREDNISOLIN [Concomitant]
     Dosage: 10 mg, Unknown/D
     Route: 065
     Dates: start: 20090627, end: 20090723
  11. EUPRESSYL                          /00631801/ [Concomitant]
     Dosage: 120 mg, UID/QD
     Route: 065
     Dates: start: 20091124
  12. TRIATEC                            /00116401/ [Concomitant]
     Dosage: 10 mg, Unknown/D
     Route: 065
     Dates: start: 20090529, end: 20090902
  13. IMODIUM [Concomitant]
     Dosage: 4 mg, Unknown/D
     Route: 065
     Dates: start: 20090701
  14. SPASFON                            /00765801/ [Concomitant]
     Dosage: UNK
     Route: 065
     Dates: start: 20090825, end: 20090825
  15. TIORFAN [Concomitant]
     Dosage: 600 mg, Unknown/D
     Route: 065
     Dates: start: 20090622, end: 20090825
  16. DIFFU K [Concomitant]
     Dosage: 1.2 g, Unknown/D
     Route: 065
     Dates: start: 20090926, end: 20090929

REACTIONS (6)
  - Transplant rejection [Recovered/Resolved]
  - Ureteric stenosis [Recovered/Resolved]
  - Dehydration [Recovered/Resolved]
  - Renal tubular atrophy [Recovered/Resolved with Sequelae]
  - Kidney fibrosis [Recovered/Resolved with Sequelae]
  - Lung disorder [Recovered/Resolved]
